FAERS Safety Report 18860006 (Version 1)
Quarter: 2021Q1

REPORT INFORMATION
  Report Type: Spontaneous
  Country: US (occurrence: US)
  Receive Date: 20210208
  Receipt Date: 20210208
  Transmission Date: 20210420
  Serious: Yes (Other)
  Sender: FDA-Public Use
  Company Number: None

PATIENT
  Age: 42 Year
  Sex: Female
  Weight: 75.15 kg

DRUGS (1)
  1. REGLAN [Suspect]
     Active Substance: METOCLOPRAMIDE HYDROCHLORIDE
     Indication: GASTROOESOPHAGEAL REFLUX DISEASE
     Dates: start: 20210106, end: 20210114

REACTIONS (7)
  - Adverse drug reaction [None]
  - Dizziness [None]
  - Anxiety [None]
  - Hyperhidrosis [None]
  - Heart rate increased [None]
  - Drug hypersensitivity [None]
  - Nausea [None]

NARRATIVE: CASE EVENT DATE: 20210114
